FAERS Safety Report 24157928 (Version 1)
Quarter: 2024Q3

REPORT INFORMATION
  Report Type: Spontaneous
  Country: US (occurrence: None)
  Receive Date: 20240731
  Receipt Date: 20240731
  Transmission Date: 20241017
  Serious: No
  Sender: Public
  Company Number: None

PATIENT
  Age: 41 Year
  Sex: Female

DRUGS (1)
  1. TALTZ [Suspect]
     Active Substance: IXEKIZUMAB
     Indication: Psoriasis
     Dosage: OTHER QUANTITY : 80MG (1 PEN) ;?FREQUENCY : AS DIRECTED;?
     Route: 058
     Dates: start: 202405

REACTIONS (4)
  - Eye infection [None]
  - Injection site bruising [None]
  - Injection site pain [None]
  - Skin tightness [None]
